FAERS Safety Report 4778995-6 (Version None)
Quarter: 2005Q3

REPORT INFORMATION
  Report Type: 
  Country: None (occurrence: None)
  Receive Date: 20050923
  Receipt Date: 20050913
  Transmission Date: 20060218
  Serious: Yes (Death)
  Sender: FDA-Public Use
  Company Number: 2005127153

PATIENT
  Age: 87 Year
  Sex: Female

DRUGS (11)
  1. PREDNISONE [Suspect]
     Indication: ILL-DEFINED DISORDER
     Dosage: 5 MG ( 5 MG, 1 IN 1D), ORAL
     Route: 048
  2. TIOTROPIUM BROMIDE (TIOTROPIUM BROMIDE) [Suspect]
     Indication: BRONCHITIS CHRONIC
     Dosage: INHALATION
     Route: 055
     Dates: start: 20050819, end: 20050819
  3. RISPERDAL [Suspect]
     Indication: ILL-DEFINED DISORDER
     Dosage: 0.5 MG (0.5 MG, 1 IN 1 D),ORAL
     Route: 048
     Dates: start: 20050101, end: 20050820
  4. BROMHEXINE HYDROCHLORIDE (BROMHEXINE HYDROCHLORIDE) [Concomitant]
  5. TRANDOLAPRIL (TRANDOLARPIL) [Concomitant]
  6. SENNOSIDES (SENNOSIDES) [Concomitant]
  7. MISOPROSTOL [Concomitant]
  8. LOXOPROFEN SODIUM (LOXOPROFEN SODIUM) [Concomitant]
  9. QUETIAPINE FUMARATE [Concomitant]
  10. BUCILLAMINE (BUCILLAMINE) [Concomitant]
  11. ZIOPICLONE (ZOPICLONE) [Concomitant]

REACTIONS (4)
  - BRONCHITIS CHRONIC [None]
  - CARDIOMEGALY [None]
  - COUGH [None]
  - SUDDEN DEATH [None]
